FAERS Safety Report 12041548 (Version 2)
Quarter: 2016Q1

REPORT INFORMATION
  Report Type: Spontaneous
  Country: CA (occurrence: CA)
  Receive Date: 20160208
  Receipt Date: 20160215
  Transmission Date: 20160526
  Serious: Yes (Other)
  Sender: FDA-Public Use
  Company Number: CA-TEVA-632396ACC

PATIENT
  Age: 50 Year
  Sex: Female

DRUGS (6)
  1. AMIODARONE [Concomitant]
     Active Substance: AMIODARONE
  2. NOVO-MEXILETINE [Suspect]
     Active Substance: MEXILETINE
     Indication: VENTRICULAR TACHYCARDIA
     Dosage: 300 MILLIGRAM DAILY;
     Route: 048
  3. FUROSEMIDE. [Concomitant]
     Active Substance: FUROSEMIDE
  4. JANUMET [Concomitant]
     Active Substance: METFORMIN HYDROCHLORIDE\SITAGLIPTIN PHOSPHATE
  5. ATENOLOL TABLETS, BP [Concomitant]
     Active Substance: ATENOLOL
  6. MAGLUCATE (MAGNESIUM GLUCONATE TABLETS USP) 500 MG [Concomitant]

REACTIONS (2)
  - Dyspnoea [Unknown]
  - Throat irritation [Unknown]
